FAERS Safety Report 10103615 (Version 1)
Quarter: 2014Q2

REPORT INFORMATION
  Report Type: Spontaneous
  Country: GB (occurrence: GB)
  Receive Date: 20140424
  Receipt Date: 20140424
  Transmission Date: 20141212
  Serious: Yes (Other)
  Sender: FDA-Public Use
  Company Number: GB-PFIZER INC-2014110003

PATIENT
  Age: 79 Year
  Sex: Male

DRUGS (4)
  1. TEMSIROLIMUS [Suspect]
     Indication: RENAL CANCER METASTATIC
     Dosage: 24MG, INITIALLY 24MG THEN REDUCED TO 20MG AFTER CYCLE 4.
     Route: 042
     Dates: start: 20131217
  2. TEMSIROLIMUS [Suspect]
     Dosage: 20MG INITIALLY 24MG THEN REDUCED TO 20MG AFTER CYCLE 4.
     Route: 042
     Dates: end: 20140204
  3. CHLORPHENIRAMINE [Concomitant]
     Dosage: UNK
  4. DOMPERIDONE [Concomitant]
     Dosage: UNK

REACTIONS (1)
  - Pulmonary fibrosis [Recovered/Resolved with Sequelae]
